FAERS Safety Report 7512628-0 (Version None)
Quarter: 2011Q2

REPORT INFORMATION
  Report Type: 
  Country: None (occurrence: None)
  Receive Date: 20110520
  Receipt Date: 20110511
  Transmission Date: 20111010
  Serious: Yes (Hospitalization)
  Sender: FDA-Public Use
  Company Number: 2011SP022033

PATIENT
  Age: 79 Year
  Sex: Male
  Weight: 77.3 kg

DRUGS (11)
  1. NS [Concomitant]
  2. TEMODAR [Suspect]
     Indication: DISEASE RECURRENCE
     Dosage: 100 MG; QD; PO
     Route: 048
     Dates: start: 20110210, end: 20110225
  3. AVASTIN [Suspect]
     Indication: MALIGNANT GLIOMA
     Dosage: 713 MG; QOW; IV
     Route: 042
     Dates: start: 20110225
  4. AVASTIN [Suspect]
     Indication: MALIGNANT GLIOMA
     Dosage: 713 MG; QOW; IV
     Route: 042
     Dates: start: 20110210
  5. LEVETIRACETAM [Concomitant]
  6. ZOFRAN [Concomitant]
  7. MULTI-VITAMIN [Concomitant]
  8. ALBUTEROL INHALER [Concomitant]
  9. DEXAMETHASONE [Concomitant]
  10. LOVENOX [Concomitant]
  11. VORINOSTAT [Suspect]
     Indication: MALIGNANT GLIOMA
     Dosage: 400 MG; QOW; PO
     Route: 048
     Dates: start: 20110210

REACTIONS (10)
  - CHILLS [None]
  - CONFUSIONAL STATE [None]
  - ATELECTASIS [None]
  - HYPOKALAEMIA [None]
  - HYPOXIA [None]
  - PLEURAL EFFUSION [None]
  - HYPOPHOSPHATAEMIA [None]
  - INFECTION [None]
  - LOBAR PNEUMONIA [None]
  - HAEMOGLOBIN DECREASED [None]
